FAERS Safety Report 7384258-5 (Version None)
Quarter: 2011Q1

REPORT INFORMATION
  Report Type: 
  Country: None (occurrence: None)
  Receive Date: 20110330
  Receipt Date: 20110324
  Transmission Date: 20110831
  Serious: Yes (Other)
  Sender: FDA-Public Use
  Company Number: CA-BAYER-200915174NA

PATIENT
  Sex: Male
  Weight: 111 kg

DRUGS (2)
  1. BETASERON [Suspect]
     Indication: RELAPSING-REMITTING MULTIPLE SCLEROSIS
     Dosage: 8 MIU, QOD
     Route: 058
     Dates: start: 20081208, end: 20090101
  2. BETASERON [Suspect]
     Dosage: UNK
     Dates: start: 20101201

REACTIONS (19)
  - PAIN IN JAW [None]
  - MUSCLE FATIGUE [None]
  - BACK PAIN [None]
  - ABDOMINAL PAIN UPPER [None]
  - HEPATIC FUNCTION ABNORMAL [None]
  - PAIN IN EXTREMITY [None]
  - CONFUSIONAL STATE [None]
  - HYPOAESTHESIA [None]
  - FATIGUE [None]
  - HEADACHE [None]
  - APHAGIA [None]
  - VISION BLURRED [None]
  - ABDOMINAL DISCOMFORT [None]
  - FEELING ABNORMAL [None]
  - LYMPHADENOPATHY [None]
  - DEPRESSION [None]
  - ANXIETY [None]
  - SUICIDAL IDEATION [None]
  - BURNING SENSATION [None]
